FAERS Safety Report 12382717 (Version 3)
Quarter: 2017Q4

REPORT INFORMATION
  Report Type: Report from Study
  Country: US (occurrence: US)
  Receive Date: 20160518
  Receipt Date: 20171122
  Transmission Date: 20180320
  Serious: Yes (Disabling, Other)
  Sender: FDA-Public Use
  Company Number: US-PURDUE-USA-2015-0127605

PATIENT
  Age: 73 Year
  Sex: Female

DRUGS (4)
  1. OXYCODONE HYDROCHLORIDE. [Suspect]
     Active Substance: OXYCODONE HYDROCHLORIDE
     Indication: NEUROPATHY PERIPHERAL
     Dosage: 80 MG, Q8H
     Route: 048
     Dates: end: 20151113
  2. OXYCODONE HYDROCHLORIDE. [Suspect]
     Active Substance: OXYCODONE HYDROCHLORIDE
     Indication: INTERVERTEBRAL DISC DEGENERATION
     Dosage: 30 MG, BID
     Route: 048
     Dates: start: 20171019
  3. OXYCODONE HYDROCHLORIDE. [Suspect]
     Active Substance: OXYCODONE HYDROCHLORIDE
     Indication: RADICULOPATHY
     Dosage: UNK
     Route: 048
     Dates: start: 200304
  4. OXYCODONE HYDROCHLORIDE. [Suspect]
     Active Substance: OXYCODONE HYDROCHLORIDE
     Indication: PAIN

REACTIONS (18)
  - Bronchitis [Unknown]
  - Drug withdrawal syndrome [Unknown]
  - Tooth fracture [Unknown]
  - Mobility decreased [Unknown]
  - General physical health deterioration [Unknown]
  - Vomiting [Unknown]
  - Rib fracture [Unknown]
  - Complex regional pain syndrome [Not Recovered/Not Resolved]
  - Tremor [Unknown]
  - Fluid retention [Unknown]
  - Off label use [Unknown]
  - Intentional product use issue [Unknown]
  - Fall [Unknown]
  - Dental caries [Unknown]
  - Disability [Unknown]
  - Loss of personal independence in daily activities [Unknown]
  - Asthenia [Unknown]
  - Respiratory tract infection [Unknown]

NARRATIVE: CASE EVENT DATE: 20151117
